FAERS Safety Report 4742808-9 (Version None)
Quarter: 2005Q3

REPORT INFORMATION
  Report Type: 
  Country: None (occurrence: None)
  Receive Date: 20050811
  Receipt Date: 20050808
  Transmission Date: 20060218
  Serious: Yes (Other)
  Sender: FDA-Public Use
  Company Number: US-GLAXOSMITHKLINE-A0569247A

PATIENT
  Age: 54 Year
  Sex: Female

DRUGS (4)
  1. ADVAIR DISKUS 100/50 [Suspect]
     Indication: ASTHMA
     Dosage: 1PUFF PER DAY
     Route: 055
     Dates: start: 20050701
  2. ALBUTEROL [Concomitant]
  3. MULTI-VITAMIN [Concomitant]
  4. BACTIN [Concomitant]

REACTIONS (11)
  - ABDOMINAL TENDERNESS [None]
  - BREAST ATROPHY [None]
  - BREAST PAIN [None]
  - CRYING [None]
  - DYSPHONIA [None]
  - MUSCLE SPASMS [None]
  - NAUSEA [None]
  - ORAL PAIN [None]
  - PARAESTHESIA [None]
  - PLEURITIC PAIN [None]
  - VAGINAL DISCHARGE [None]
